FAERS Safety Report 8781801 (Version 4)
Quarter: 2012Q4

REPORT INFORMATION
  Report Type: Report from Study
  Country: NL (occurrence: NL)
  Receive Date: 20120913
  Receipt Date: 20121206
  Transmission Date: 20130627
  Serious: Yes (Life-Threatening, Hospitalization, Disabling, Other)
  Sender: FDA-Public Use
  Company Number: NL-GENZYME-CLOF-1002292

PATIENT
  Age: 42 Year
  Sex: Female
  Weight: 84 kg

DRUGS (3)
  1. EVOLTRA [Suspect]
     Indication: MYELODYSPLASTIC SYNDROME
     Dosage: 21 mg, UNK
     Route: 042
     Dates: start: 20120208, end: 20120216
  2. CYTARABINE [Suspect]
     Indication: MYELODYSPLASTIC SYNDROME
     Dosage: 1000 mg, qd
     Route: 042
     Dates: start: 20120320, end: 20120325
  3. IDARUBICIN [Suspect]
     Indication: MYELODYSPLASTIC SYNDROME
     Dosage: 20 mg, qd
     Route: 042
     Dates: start: 20120323, end: 20120325

REACTIONS (4)
  - Pancytopenia [Recovered/Resolved]
  - Lung infection [Unknown]
  - Neutrophil count decreased [Recovered/Resolved]
  - Platelet count decreased [Recovered/Resolved]
